FAERS Safety Report 8660627 (Version 4)
Quarter: 2013Q4

REPORT INFORMATION
  Report Type: Spontaneous
  Country: FR (occurrence: FR)
  Receive Date: 20120711
  Receipt Date: 20131031
  Transmission Date: 20140711
  Serious: Yes (Life-Threatening, Hospitalization, Other)
  Sender: FDA-Public Use
  Company Number: FR-009507513-1207FRA000229

PATIENT
  Age: 74 Year
  Sex: Male

DRUGS (6)
  1. VELMETIA [Suspect]
     Indication: TYPE 2 DIABETES MELLITUS
     Dosage: 2 DF, QD
     Route: 048
     Dates: start: 20120215, end: 20120621
  2. APROVEL [Suspect]
     Indication: HYPERTENSION
     Dosage: 150 MG, QD
     Route: 048
     Dates: start: 200801, end: 20120621
  3. METFORMIN HYDROCHLORIDE [Suspect]
     Dosage: 1000 MG, QD
     Route: 048
     Dates: start: 1990, end: 20120621
  4. COTRIATEC [Suspect]
     Indication: HYPERTENSION
     Dosage: 1 DF, QD
     Route: 048
     Dates: start: 200801, end: 20120621
  5. SIMVASTATIN [Concomitant]
     Dosage: 20 MG, UNK
     Dates: start: 2005, end: 20120621
  6. IMOVANE [Concomitant]
     Dosage: 7.5 MG, UNK
     Dates: end: 20120630

REACTIONS (5)
  - Renal failure acute [Recovering/Resolving]
  - Cardiac arrest [Recovered/Resolved]
  - Lactic acidosis [Recovered/Resolved]
  - Hyperkalaemia [Recovered/Resolved]
  - Overdose [Recovered/Resolved]
